FAERS Safety Report 8354799-2 (Version None)
Quarter: 2012Q2

REPORT INFORMATION
  Report Type: 
  Country: None (occurrence: None)
  Receive Date: 20120511
  Receipt Date: 20120507
  Transmission Date: 20120825
  Serious: Yes (Hospitalization)
  Sender: FDA-Public Use
  Company Number: US-TEVA-332196USA

PATIENT
  Sex: Male

DRUGS (9)
  1. ATORVASTATIN CALCIUM [Concomitant]
  2. VALPROATE SODIUM [Concomitant]
  3. M.V.I. [Concomitant]
  4. LORAZEPAM [Concomitant]
  5. LEVOTHYROXINE SODIUM [Concomitant]
  6. CITALOPRAM [Concomitant]
  7. CLOZAPINE [Suspect]
     Indication: SCHIZOPHRENIA
     Route: 048
  8. TRAZODONE HCL [Concomitant]
  9. COMBIVENT [Concomitant]

REACTIONS (2)
  - PNEUMONIA [None]
  - CHRONIC OBSTRUCTIVE PULMONARY DISEASE [None]
